FAERS Safety Report 19970400 (Version 1)
Quarter: 2021Q4

REPORT INFORMATION
  Report Type: Spontaneous
  Country: FI (occurrence: FI)
  Receive Date: 20211019
  Receipt Date: 20211019
  Transmission Date: 20220304
  Serious: Yes (Hospitalization)
  Sender: FDA-Public Use
  Company Number: None

PATIENT
  Age: 25 Year
  Sex: Female

DRUGS (1)
  1. MIRENA [Suspect]
     Active Substance: LEVONORGESTREL
     Indication: Contraception
     Dosage: 20 ?G, CONT
     Route: 015
     Dates: start: 202103, end: 202109

REACTIONS (7)
  - Visual impairment [Not Recovered/Not Resolved]
  - Depression [Not Recovered/Not Resolved]
  - Weight increased [Not Recovered/Not Resolved]
  - Loss of libido [Not Recovered/Not Resolved]
  - Acne [Not Recovered/Not Resolved]
  - Headache [Not Recovered/Not Resolved]
  - Intentional self-injury [Not Recovered/Not Resolved]

NARRATIVE: CASE EVENT DATE: 20210301
